FAERS Safety Report 16196326 (Version 1)
Quarter: 2019Q2

REPORT INFORMATION
  Report Type: Spontaneous
  Country: US (occurrence: US)
  Receive Date: 20190415
  Receipt Date: 20190415
  Transmission Date: 20190711
  Serious: Yes (Other)
  Sender: FDA-Public Use
  Company Number: US-BIOGEN-2019BI00725115

PATIENT
  Sex: Female

DRUGS (1)
  1. TYSABRI [Suspect]
     Active Substance: NATALIZUMAB
     Indication: MULTIPLE SCLEROSIS
     Route: 042
     Dates: start: 20190306

REACTIONS (6)
  - Incorrect drug administration rate [Recovered/Resolved]
  - Incorrect dose administered [Recovered/Resolved]
  - Poor quality product administered [Recovered/Resolved]
  - Breast cancer female [Recovered/Resolved]
  - Product dose omission [Recovered/Resolved]
  - General physical health deterioration [Recovered/Resolved]
